FAERS Safety Report 5307653-4 (Version None)
Quarter: 2007Q2

REPORT INFORMATION
  Report Type: 
  Country: None (occurrence: None)
  Receive Date: 20070418
  Receipt Date: 20070402
  Transmission Date: 20071010
  Serious: Yes (Other)
  Sender: FDA-Public Use
  Company Number: 6031646

PATIENT
  Age: 28 Year
  Sex: Female

DRUGS (4)
  1. LEVOTHYROX (50 MICROGRAM, TABLET) (LEVOTHYROXINE SODIUM) [Suspect]
     Indication: HYPOTHYROIDISM
     Dosage: 1 DOSAGE FORMS (1 DOSAGE FORMS, 1 D), ORAL
     Route: 048
     Dates: start: 20030830, end: 20040815
  2. LEVOTHYROX (50 MICROGRAM, TABLET) (LEVOTHYROXINE SODIUM) [Suspect]
     Indication: HYPOTHYROIDISM
     Dosage: 1 DOSAGE FORMS (1 DOSAGE FORMS, 1 D), ORAL
     Route: 048
     Dates: start: 20040815, end: 20060815
  3. LEVOTHYROX (50 MICROGRAM, TABLET) (LEVOTHYROXINE SODIUM) [Suspect]
     Indication: HYPOTHYROIDISM
     Dosage: 1 DOSAGE FORMS (1 DOSAGE FORMS, 1 D), ORAL
     Route: 048
     Dates: start: 20060815
  4. CERAZETTE ( DESOGESTREL) [Suspect]
     Indication: ORAL CONTRACEPTION
     Dosage: 1 DOSAGE FORMS (1 DOSAGE FORMS, 1 D),ORAL
     Route: 048
     Dates: start: 20030101

REACTIONS (1)
  - ACNE CYSTIC [None]
